FAERS Safety Report 4616934-9 (Version None)
Quarter: 2005Q1

REPORT INFORMATION
  Report Type: 
  Country: None (occurrence: None)
  Receive Date: 20050321
  Receipt Date: 20050307
  Transmission Date: 20050727
  Serious: Yes (Other)
  Sender: FDA-Public Use
  Company Number: 2005043257

PATIENT
  Age: 31 Year
  Sex: Female

DRUGS (1)
  1. GENOTONORM   (SOMATROPIN) [Suspect]
     Indication: HYPOPITUITARISM
     Dates: start: 20041001, end: 20050101

REACTIONS (4)
  - CARPAL TUNNEL SYNDROME [None]
  - CONDITION AGGRAVATED [None]
  - PAIN [None]
  - PARAESTHESIA [None]
